FAERS Safety Report 11064973 (Version 2)
Quarter: 2015Q2

REPORT INFORMATION
  Report Type: Spontaneous
  Country: US (occurrence: US)
  Receive Date: 20150424
  Receipt Date: 20150524
  Transmission Date: 20150821
  Serious: No
  Sender: FDA-Public Use
  Company Number: US-JNJFOC-20140613953

PATIENT
  Age: 65 Year
  Sex: Female
  Weight: 68.49 kg

DRUGS (2)
  1. CONCERTA [Suspect]
     Active Substance: METHYLPHENIDATE HYDROCHLORIDE
     Indication: PRODUCT USED FOR UNKNOWN INDICATION
     Route: 048
     Dates: start: 2008
  2. DEXEDRINE [Suspect]
     Active Substance: DEXTROAMPHETAMINE SULFATE
     Indication: PRODUCT USED FOR UNKNOWN INDICATION
     Route: 065

REACTIONS (6)
  - Peripheral swelling [Recovered/Resolved]
  - Drug diversion [Unknown]
  - Paranoia [Recovered/Resolved]
  - Vision blurred [Recovering/Resolving]
  - Nervousness [Recovered/Resolved]
  - Urine amphetamine positive [Unknown]

NARRATIVE: CASE EVENT DATE: 2008
